FAERS Safety Report 11293271 (Version 1)
Quarter: 2015Q3

REPORT INFORMATION
  Report Type: Spontaneous
  Country: US (occurrence: US)
  Receive Date: 20150722
  Receipt Date: 20150722
  Transmission Date: 20151125
  Serious: No
  Sender: FDA-Public Use
  Company Number: US-BAYER-2015-378495

PATIENT
  Age: 75 Year
  Sex: Male
  Weight: 91 kg

DRUGS (4)
  1. COQ10 [Concomitant]
     Active Substance: UBIDECARENONE
  2. METFORMIN [Concomitant]
     Active Substance: METFORMIN HYDROCHLORIDE
     Dosage: UNK UNK, TID
  3. ASPIRIN. [Concomitant]
     Active Substance: ASPIRIN
  4. MIRALAX [Suspect]
     Active Substance: POLYETHYLENE GLYCOL 3350
     Indication: CONSTIPATION
     Dosage: 1 UNIT DOSE, BID
     Route: 048
     Dates: start: 201506

REACTIONS (2)
  - Blood glucose increased [Unknown]
  - Off label use [None]

NARRATIVE: CASE EVENT DATE: 201506
